FAERS Safety Report 5090500-6 (Version None)
Quarter: 2006Q3

REPORT INFORMATION
  Report Type: 
  Country: None (occurrence: None)
  Receive Date: 20060828
  Receipt Date: 20060517
  Transmission Date: 20061208
  Serious: No
  Sender: FDA-Public Use
  Company Number: US-GLAXOSMITHKLINE-A0606053A

PATIENT
  Sex: Female

DRUGS (6)
  1. WELLBUTRIN XL [Suspect]
     Indication: DEPRESSION
     Dosage: 150MG PER DAY
     Route: 048
     Dates: start: 20050801, end: 20060515
  2. NEXIUM [Suspect]
     Dosage: 40MG PER DAY
     Route: 048
     Dates: start: 20050401, end: 20060515
  3. RISPERIDONE [Suspect]
     Indication: AGITATION
     Dosage: .25MG AT NIGHT
     Route: 048
     Dates: start: 20060510, end: 20060512
  4. BENICAR HCT [Concomitant]
  5. CARDIZEM [Concomitant]
  6. LESCOL [Concomitant]

REACTIONS (7)
  - AGITATION [None]
  - CHILLS [None]
  - HEADACHE [None]
  - HOT FLUSH [None]
  - INFLUENZA LIKE ILLNESS [None]
  - NAUSEA [None]
  - TINNITUS [None]
